FAERS Safety Report 10158002 (Version 2)
Quarter: 2014Q2

REPORT INFORMATION
  Report Type: Spontaneous
  Country: US (occurrence: US)
  Receive Date: 20140507
  Receipt Date: 20140507
  Transmission Date: 20141212
  Serious: Yes (Death, Hospitalization)
  Sender: FDA-Public Use
  Company Number: US-CUBIST PHARMACEUTICAL, INC.-2009S1000448

PATIENT
  Sex: 0

DRUGS (2)
  1. CUBICIN [Suspect]
     Indication: MULTIPLE SCLEROSIS
     Dosage: 4 MG/KG, QD
     Route: 042
  2. CUBICIN [Suspect]
     Indication: OFF LABEL USE

REACTIONS (2)
  - Confusional state [Unknown]
  - Rash [Unknown]
